FAERS Safety Report 19715919 (Version 2)
Quarter: 2021Q3

REPORT INFORMATION
  Report Type: Spontaneous
  Country: US (occurrence: US)
  Receive Date: 20210819
  Receipt Date: 20210903
  Transmission Date: 20211014
  Serious: No
  Sender: FDA-Public Use
  Company Number: US-ASTRAZENECA-2021A646830

PATIENT
  Age: 81 Year
  Sex: Male
  Weight: 88.5 kg

DRUGS (1)
  1. CALQUENCE [Suspect]
     Active Substance: ACALABRUTINIB
     Indication: MANTLE CELL LYMPHOMA
     Route: 048
     Dates: start: 20201230, end: 202105

REACTIONS (7)
  - Rash erythematous [Recovered/Resolved]
  - Skin discolouration [Not Recovered/Not Resolved]
  - Skin haemorrhage [Recovered/Resolved]
  - Rash pruritic [Recovered/Resolved]
  - Weight decreased [Recovered/Resolved]
  - Diarrhoea [Recovered/Resolved]
  - Dehydration [Recovered/Resolved]

NARRATIVE: CASE EVENT DATE: 2021
